FAERS Safety Report 8535760-1 (Version None)
Quarter: 2012Q2

REPORT INFORMATION
  Report Type: 
  Country: None (occurrence: None)
  Receive Date: 20120412
  Receipt Date: 20090211
  Transmission Date: 20120825
  Serious: Yes (Hospitalization)
  Sender: FDA-Public Use
  Company Number: PHEH2009US01623

PATIENT
  Age: 58 Year
  Sex: Female
  Weight: 52.6 kg

DRUGS (2)
  1. ESTALIS COMBIPATCH(ESTRADIOL, NORETHISTERONE ACETATE) TRANS-THERAPEUTI [Suspect]
     Dosage: 150/250, TRANSDERMAL
     Route: 062
  2. VIVELEL DOT (ESTRADIOL) [Concomitant]

REACTIONS (2)
  - MASTECTOMY [None]
  - BREAST CANCER [None]
